FAERS Safety Report 16088321 (Version 2)
Quarter: 2019Q2

REPORT INFORMATION
  Report Type: Report from Study
  Country: IT (occurrence: IT)
  Receive Date: 20190319
  Receipt Date: 20190410
  Transmission Date: 20190711
  Serious: Yes (Other)
  Sender: FDA-Public Use
  Company Number: IT-ROCHE-1660222

PATIENT
  Age: 67 Year
  Sex: Male
  Weight: 78 kg

DRUGS (12)
  1. BISOLVON [Concomitant]
     Active Substance: BROMHEXINE HYDROCHLORIDE
     Indication: INFLUENZA
     Route: 048
     Dates: start: 20160408, end: 20160412
  2. PLASIL [Concomitant]
     Active Substance: METOCLOPRAMIDE HYDROCHLORIDE
     Route: 048
     Dates: start: 20160722
  3. PLASIL [Concomitant]
     Active Substance: METOCLOPRAMIDE HYDROCHLORIDE
     Indication: VOMITING
     Route: 048
     Dates: start: 20151221, end: 20151221
  4. FENTANYL. [Concomitant]
     Active Substance: FENTANYL
     Indication: DISEASE PROGRESSION
     Dosage: 12.5 MCG/HR
     Route: 061
     Dates: start: 20160717
  5. ATEZOLIZUMAB. [Suspect]
     Active Substance: ATEZOLIZUMAB
     Indication: NEOPLASM
     Dosage: MOST RECENT DOSE 1200 MG OF ATEZOLIZUMAB WAS ADMINISTERED ON 19/OCT/2015 PRIOR TO EVENT ONSET
     Route: 042
     Dates: start: 20150818, end: 20151109
  6. DEURSIL [Concomitant]
     Active Substance: URSODIOL
     Dosage: 1 CAPSULE
     Route: 048
  7. SPORANOX [Concomitant]
     Active Substance: ITRACONAZOLE
     Indication: OESOPHAGEAL CANDIDIASIS
     Route: 048
     Dates: start: 20160507, end: 20160513
  8. NEXIUM [Concomitant]
     Active Substance: ESOMEPRAZOLE MAGNESIUM
     Indication: GASTROOESOPHAGEAL REFLUX DISEASE
     Route: 048
     Dates: start: 20160507
  9. PARIET [Concomitant]
     Active Substance: RABEPRAZOLE SODIUM
     Indication: GASTROINTESTINAL DISORDER PROPHYLAXIS
     Route: 048
     Dates: start: 20160722
  10. OMNIC [Concomitant]
     Active Substance: TAMSULOSIN HYDROCHLORIDE
     Dosage: 1 CAPSULE
     Route: 048
  11. ATEZOLIZUMAB. [Suspect]
     Active Substance: ATEZOLIZUMAB
     Route: 042
     Dates: start: 20151123
  12. TAVANIC [Concomitant]
     Active Substance: LEVOFLOXACIN
     Indication: INFLUENZA
     Route: 048
     Dates: start: 20160408, end: 20160412

REACTIONS (1)
  - Type 1 diabetes mellitus [Not Recovered/Not Resolved]

NARRATIVE: CASE EVENT DATE: 20151106
